FAERS Safety Report 11286254 (Version 1)
Quarter: 2015Q3

REPORT INFORMATION
  Report Type: Spontaneous
  Country: US (occurrence: None)
  Receive Date: 20150717
  Receipt Date: 20150717
  Transmission Date: 20151125
  Serious: Yes (Death, Hospitalization)
  Sender: FDA-Public Use
  Company Number: PR-AE15-000522

PATIENT
  Age: 51 Year
  Sex: Female

DRUGS (2)
  1. LITHIUM. [Concomitant]
     Active Substance: LITHIUM
  2. GOODYS EXTRA STRENGTH [Suspect]
     Active Substance: ACETAMINOPHEN\ASPIRIN\CAFFEINE
     Indication: SINUS HEADACHE
     Dosage: TID, - QID
     Route: 048
     Dates: start: 2014, end: 20150610

REACTIONS (8)
  - Drug abuse [None]
  - Ulcer [None]
  - Gastric disorder [None]
  - Loss of consciousness [None]
  - Myocardial infarction [None]
  - Coma [None]
  - Haemorrhage [None]
  - Internal haemorrhage [None]

NARRATIVE: CASE EVENT DATE: 20150611
